FAERS Safety Report 16526081 (Version 2)
Quarter: 2019Q3

REPORT INFORMATION
  Report Type: Spontaneous
  Country: DE (occurrence: DE)
  Receive Date: 20190703
  Receipt Date: 20190807
  Transmission Date: 20191004
  Serious: Yes (Other)
  Sender: FDA-Public Use
  Company Number: DE-DRREDDYS-GER/GER/19/0111412

PATIENT
  Age: 67 Year
  Sex: Female
  Weight: 60 kg

DRUGS (7)
  1. IBUPROFEN 600 [Suspect]
     Active Substance: IBUPROFEN
     Indication: PRODUCT USED FOR UNKNOWN INDICATION
     Route: 048
     Dates: start: 20190625, end: 20190625
  2. QUETIAPIN 50 [Suspect]
     Active Substance: QUETIAPINE
     Indication: PRODUCT USED FOR UNKNOWN INDICATION
     Dosage: 1 TABLET/S CONFUSION
     Route: 048
     Dates: start: 20190625, end: 20190625
  3. XARELTO [Suspect]
     Active Substance: RIVAROXABAN
     Indication: PRODUCT USED FOR UNKNOWN INDICATION
     Dosage: 1 TABLET/S CONFUSION
     Route: 048
  4. RIVASTIGMIN BETA 3 MG HARTKAPSELN [Suspect]
     Active Substance: RIVASTIGMINE
     Indication: PRODUCT USED FOR UNKNOWN INDICATION
     Route: 048
  5. MIRTAZAPIN 15 [Suspect]
     Active Substance: MIRTAZAPINE
     Indication: PRODUCT USED FOR UNKNOWN INDICATION
     Dosage: 0-0-1 TABLET/S LONG-TERM MEDICATION
     Route: 048
  6. MELPERON 25 [Suspect]
     Active Substance: MELPERONE
     Indication: PRODUCT USED FOR UNKNOWN INDICATION
     Dosage: 1-1-1 TABLET/S LONG-TERM MEDICATION
     Route: 048
  7. MADOPAR 125MG [Suspect]
     Active Substance: BENSERAZIDE HYDROCHLORIDE\LEVODOPA
     Indication: PRODUCT USED FOR UNKNOWN INDICATION
     Dosage: 1 TABLET/S CONFUSION
     Route: 048
     Dates: start: 20190625, end: 20190625

REACTIONS (2)
  - Accidental exposure to product [Unknown]
  - Vomiting [Unknown]
